FAERS Safety Report 8307711-6 (Version None)
Quarter: 2012Q2

REPORT INFORMATION
  Report Type: 
  Country: None (occurrence: None)
  Receive Date: 20120424
  Receipt Date: 20120424
  Transmission Date: 20120825
  Serious: Yes (Other)
  Sender: FDA-Public Use
  Company Number: US-AMGEN-USASP2012019776

PATIENT
  Age: 40 Year
  Sex: Female

DRUGS (1)
  1. ENBREL [Suspect]
     Indication: PSORIASIS
     Dosage: 50 MG, 2 TIMES/WK
     Route: 058
     Dates: start: 20120316

REACTIONS (6)
  - DIZZINESS [None]
  - FATIGUE [None]
  - DISTURBANCE IN ATTENTION [None]
  - FLUSHING [None]
  - HYPOAESTHESIA ORAL [None]
  - HYPERHIDROSIS [None]
